FAERS Safety Report 8216772-4 (Version None)
Quarter: 2012Q1

REPORT INFORMATION
  Report Type: 
  Country: None (occurrence: None)
  Receive Date: 20120316
  Receipt Date: 20120306
  Transmission Date: 20120608
  Serious: Yes (Other)
  Sender: FDA-Public Use
  Company Number: FR-ROCHE-GNE311130

PATIENT
  Sex: Female
  Weight: 42.646 kg

DRUGS (7)
  1. HYDROCORTISONE [Concomitant]
     Indication: PRODUCT USED FOR UNKNOWN INDICATION
     Dosage: 20 MG, UNK
  2. MINIRIN [Concomitant]
     Indication: PRODUCT USED FOR UNKNOWN INDICATION
     Dosage: 300 A?G, TID
  3. OROMONE [Concomitant]
  4. SOMATROPIN [Suspect]
     Indication: HYPOPITUITARISM
     Dosage: 1.8 MG, QD
     Route: 058
     Dates: start: 20100625
  5. SOMATROPIN [Suspect]
     Dates: start: 20111001
  6. LEVOTHYROXINE SODIUM [Concomitant]
     Indication: PRODUCT USED FOR UNKNOWN INDICATION
     Dosage: 200 A?G, QD
  7. SOMATROPIN [Suspect]
     Indication: GROWTH HORMONE DEFICIENCY
     Dosage: 1.6 MG, 6/WEEK
     Route: 058
     Dates: start: 20060524, end: 20091021

REACTIONS (5)
  - ABNORMAL BEHAVIOUR [None]
  - HYPERPHAGIA [None]
  - CRANIOPHARYNGIOMA [None]
  - DEPRESSION [None]
  - ASTHENIA [None]
